FAERS Safety Report 8476155-9 (Version None)
Quarter: 2012Q2

REPORT INFORMATION
  Report Type: 
  Country: None (occurrence: None)
  Receive Date: 20120628
  Receipt Date: 20110707
  Transmission Date: 20120825
  Serious: Yes (Other)
  Sender: FDA-Public Use
  Company Number: JP-UCBSA-036123

PATIENT
  Age: 18 Year
  Sex: Male
  Weight: 54 kg

DRUGS (5)
  1. MAGNESIUM OXIDE [Concomitant]
     Route: 048
  2. VALPROATE SODIUM [Concomitant]
     Route: 048
  3. KEPPRA [Suspect]
     Indication: EPILEPSY
     Route: 048
     Dates: start: 20110611, end: 20110622
  4. LAMICTAL [Concomitant]
     Route: 048
     Dates: start: 20091207
  5. PHENYTOIN SODIUM CAP [Concomitant]
     Route: 048

REACTIONS (4)
  - TIC [None]
  - CHOREOATHETOSIS [None]
  - CONVULSION [None]
  - PYREXIA [None]
